FAERS Safety Report 16259993 (Version 5)
Quarter: 2019Q2

REPORT INFORMATION
  Report Type: Report from Study
  Country: US (occurrence: US)
  Receive Date: 20190501
  Receipt Date: 20190618
  Transmission Date: 20190711
  Serious: Yes (Hospitalization, Other)
  Sender: FDA-Public Use
  Company Number: US-B.I. PHARMACEUTICALS,INC./RIDGEFIELD-2017-BI-038945

PATIENT
  Age: 75 Year
  Sex: Male

DRUGS (4)
  1. OFEV [Suspect]
     Active Substance: NINTEDANIB
     Route: 048
  2. OFEV [Suspect]
     Active Substance: NINTEDANIB
     Indication: IDIOPATHIC PULMONARY FIBROSIS
     Route: 048
     Dates: start: 20170516, end: 20190404
  3. OFEV [Suspect]
     Active Substance: NINTEDANIB
     Route: 048
     Dates: start: 20190506
  4. OFEV [Suspect]
     Active Substance: NINTEDANIB
     Route: 048

REACTIONS (39)
  - Localised infection [Not Recovered/Not Resolved]
  - Emotional distress [Unknown]
  - Diarrhoea [Unknown]
  - Diarrhoea [Not Recovered/Not Resolved]
  - Weight decreased [Not Recovered/Not Resolved]
  - Abdominal discomfort [Unknown]
  - Concussion [Unknown]
  - Pneumonia [Unknown]
  - Procedural complication [Unknown]
  - Chest pain [Unknown]
  - Flatulence [Unknown]
  - Oxygen saturation decreased [Not Recovered/Not Resolved]
  - Medical device site pain [Recovering/Resolving]
  - Respiratory tract infection [Unknown]
  - Rhinorrhoea [Unknown]
  - Secretion discharge [Recovered/Resolved]
  - Loss of consciousness [Recovered/Resolved]
  - Heart rate irregular [Not Recovered/Not Resolved]
  - Costochondritis [Not Recovered/Not Resolved]
  - Aortic aneurysm [Unknown]
  - Dyspnoea [Unknown]
  - Nausea [Not Recovered/Not Resolved]
  - Gastric disorder [Not Recovered/Not Resolved]
  - Post procedural diarrhoea [Unknown]
  - Pneumonia [Recovered/Resolved]
  - Joint swelling [Recovering/Resolving]
  - Weight increased [Not Recovered/Not Resolved]
  - Decreased appetite [Unknown]
  - Dyspnoea exertional [Unknown]
  - Aortic aneurysm [Not Recovered/Not Resolved]
  - Abdominal pain upper [Unknown]
  - Procedural pain [Not Recovered/Not Resolved]
  - Asthenia [Unknown]
  - Influenza like illness [Unknown]
  - Sinusitis [Unknown]
  - Sputum discoloured [Unknown]
  - Productive cough [Recovering/Resolving]
  - Back pain [Unknown]
  - Constipation [Unknown]

NARRATIVE: CASE EVENT DATE: 20190407
